FAERS Safety Report 7425935-7 (Version None)
Quarter: 2011Q2

REPORT INFORMATION
  Report Type: 
  Country: None (occurrence: None)
  Receive Date: 20110420
  Receipt Date: 20110330
  Transmission Date: 20111010
  Serious: Yes (Other)
  Sender: FDA-Public Use
  Company Number: US-BAYER-200934312NA

PATIENT
  Age: 76 Year
  Sex: Male
  Weight: 75.283 kg

DRUGS (5)
  1. VANCOMYCIN [Concomitant]
     Dosage: UNK
     Route: 042
     Dates: start: 20051115, end: 20051115
  2. VERSED [Concomitant]
     Dosage: UNK
     Dates: start: 20041115, end: 20041115
  3. ZINACEF [Concomitant]
     Dosage: 1.5GM
     Route: 042
     Dates: start: 20051115, end: 20051115
  4. EPINEPHRINE [Concomitant]
     Dosage: UNK
     Dates: start: 20041115, end: 20041115
  5. TRASYLOL [Suspect]
     Indication: CORONARY ARTERY BYPASS
     Dosage: 200CC LOADING DOSE, FOLLOWED BY 100CC/HOUR INFUSION
     Route: 042
     Dates: start: 20041115, end: 20041115

REACTIONS (12)
  - PAIN [None]
  - MULTI-ORGAN FAILURE [None]
  - RENAL INJURY [None]
  - RENAL FAILURE [None]
  - INJURY [None]
  - ANXIETY [None]
  - DEPRESSION [None]
  - ANHEDONIA [None]
  - EMOTIONAL DISTRESS [None]
  - FEAR [None]
  - UNEVALUABLE EVENT [None]
  - NERVOUSNESS [None]
